FAERS Safety Report 6196610-4 (Version None)
Quarter: 2009Q2

REPORT INFORMATION
  Report Type: 
  Country: None (occurrence: None)
  Receive Date: 20090518
  Receipt Date: 20090507
  Transmission Date: 20091009
  Serious: Yes (Death, Hospitalization, Disabling)
  Sender: FDA-Public Use
  Company Number: 2007JP004165

PATIENT
  Age: 52 Year
  Sex: Female
  Weight: 41.8 kg

DRUGS (27)
  1. TACROLIMUS [Suspect]
     Indication: LUPUS NEPHRITIS
     Dosage: 3 MG, /D, ORAL
     Route: 048
     Dates: start: 20070424, end: 20080718
  2. NIZATIDINE [Suspect]
     Dosage: 150 MG,  /D, ORAL
     Route: 048
     Dates: end: 20070609
  3. PREDNISOLONE [Suspect]
     Indication: LUPUS NEPHRITIS
     Dosage: 12.5 MG, /D, ORAL; 20 MG, /D, ORAL; 18MG, /D, ORAL;
     Route: 048
     Dates: end: 20080324
  4. PREDNISOLONE [Suspect]
     Indication: LUPUS NEPHRITIS
     Dosage: 12.5 MG, /D, ORAL; 20 MG, /D, ORAL; 18MG, /D, ORAL;
     Route: 048
     Dates: start: 20080325, end: 20080616
  5. PREDNISOLONE [Suspect]
     Indication: LUPUS NEPHRITIS
     Dosage: 12.5 MG, /D, ORAL; 20 MG, /D, ORAL; 18MG, /D, ORAL;
     Route: 048
     Dates: start: 20080617
  6. METHYLPREDNISOLON  (METHYLPREDNISOLONE) INJECTION [Suspect]
     Indication: LUPUS NEPHRITIS
     Dosage: 250 MG, /D; 250 MG/D
     Dates: start: 20070427, end: 20070428
  7. METHYLPREDNISOLON  (METHYLPREDNISOLONE) INJECTION [Suspect]
     Indication: LUPUS NEPHRITIS
     Dosage: 250 MG, /D; 250 MG/D
     Dates: start: 20070524, end: 20070528
  8. BREDININ       (MIZORIBINE) PER ORAL NOS [Suspect]
     Indication: LUPUS NEPHRITIS
     Dosage: 150 MG, /D, ORAL
     Route: 048
     Dates: start: 20071211
  9. SELBEX (TEPRENONE) [Concomitant]
  10. JUVELA N (TOCOPHERYL NICOTINATE) [Concomitant]
  11. GASTROZEPIN [Concomitant]
  12. LIPITOR [Concomitant]
  13. ACECOL (TEMOCAPRIL HYDROCHLORIDE) [Concomitant]
  14. FOSAMAC (ALENDRONATE SODIUM) [Concomitant]
  15. BASEN (VOGLIBOSE) [Concomitant]
  16. PERSANTIN [Concomitant]
  17. NOVOLIN 30R (INSULIN HUMAN, INS [Concomitant]
  18. WARFARIN SODIUM [Concomitant]
  19. LOSARTAN POTASSIUM AND HYDROCHLOROTHIAZIDE [Concomitant]
  20. BONALON (ALENDRONATE SODIUM) [Concomitant]
  21. ASPIRIN [Concomitant]
  22. URSO 250 [Concomitant]
  23. MAGLAX (MAGNESIUM OXIDE) [Concomitant]
  24. FERROMIA (FERROUS CITRATE) [Concomitant]
  25. DILTIAZEM HYDROCHLORIDE [Concomitant]
  26. LOSARTAN POTASSIUM [Concomitant]
  27. LASIX [Concomitant]

REACTIONS (11)
  - ALOPECIA [None]
  - ANAEMIA [None]
  - CELLULITIS [None]
  - CONTUSION [None]
  - INFECTION SUSCEPTIBILITY INCREASED [None]
  - LIMB INJURY [None]
  - OSTEOMYELITIS [None]
  - SKIN ULCER [None]
  - STAPHYLOCOCCAL SEPSIS [None]
  - WHITE BLOOD CELL COUNT DECREASED [None]
  - WOUND INFECTION [None]
